FAERS Safety Report 8654340 (Version 3)
Quarter: 2012Q4

REPORT INFORMATION
  Report Type: Report from Study
  Country: CA (occurrence: CA)
  Receive Date: 20120709
  Receipt Date: 20121120
  Transmission Date: 20130627
  Serious: Yes (Death, Hospitalization, Other)
  Sender: FDA-Public Use
  Company Number: CA-CELGENEUS-028-C5013-12063182

PATIENT
  Age: 68 Year
  Sex: Male
  Weight: 74.8 kg

DRUGS (22)
  1. CC-5013 [Suspect]
     Indication: CLL
     Route: 048
     Dates: start: 20120531, end: 20120620
  2. ADVIL [Concomitant]
     Indication: SHOULDER PAIN
     Route: 048
     Dates: start: 2010
  3. MULTIVITAMINS [Concomitant]
     Indication: ROUTINE HEALTH MAINTENANCE
     Dosage: 1 Tablet
     Route: 048
     Dates: start: 2010
  4. VITAMIN D [Concomitant]
     Indication: ROUTINE HEALTH MAINTENANCE
     Dosage: 1000 IU (International Unit)
     Route: 048
     Dates: start: 2010
  5. ALLOPURINOL [Concomitant]
     Indication: TUMOR LYSIS SYNDROME
     Dosage: 300 Milligram
     Route: 048
     Dates: start: 20120525, end: 20120619
  6. ALLOPURINOL [Concomitant]
     Dosage: 100 Milligram
     Route: 048
     Dates: start: 20120620
  7. ASA [Concomitant]
     Indication: PROPHYLAXIS
     Dosage: 81 Milligram
     Route: 048
     Dates: start: 20120525
  8. ZOFRAN [Concomitant]
     Indication: NAUSEA
     Dosage: 24 Milligram
     Route: 048
     Dates: start: 20120615
  9. TAZOCIN [Concomitant]
     Indication: INFECTION
     Dosage: 6.75 Gram
     Route: 041
     Dates: start: 20120619
  10. G-CSF [Concomitant]
     Indication: PROPHYLAXIS
     Dosage: 480 Milligram
     Route: 065
     Dates: start: 20120620, end: 20120620
  11. NYSTATIN [Concomitant]
     Indication: DISCOMFORT IN MOUTH
     Dosage: 50,000 units
     Route: 048
     Dates: start: 20120620
  12. LEVAQUIN [Concomitant]
     Indication: INFECTION
     Dosage: 500 Milligram
     Route: 048
     Dates: start: 20120524, end: 20120530
  13. LEVAQUIN [Concomitant]
     Dosage: 500 Milligram
     Route: 048
     Dates: start: 20120620
  14. NEUPOGEN [Concomitant]
     Indication: DRUG THERAPY
     Dosage: 300 Milligram
     Route: 058
     Dates: start: 20120529, end: 20120531
  15. NEUPOGEN [Concomitant]
     Dosage: 300 Milligram
     Route: 058
     Dates: start: 20120602, end: 20120619
  16. PAMIDRONATE [Concomitant]
     Indication: HYPERCALCEMIA
     Dosage: 90 Milligram
     Route: 041
     Dates: start: 20120604, end: 20120604
  17. TYLENOL EXTRA STRENGTH [Concomitant]
     Indication: BONE PAIN
     Dosage: 1-2 tabs
     Route: 048
     Dates: start: 20120530
  18. RASBURICASE [Concomitant]
     Indication: TUMOR LYSIS SYNDROME
     Dosage: 6 Milligram
     Route: 041
     Dates: start: 20120621, end: 2012
  19. METHYLPREDNISONE [Concomitant]
     Indication: DRUG USE FOR UNKNOWN INDICATION
     Dosage: 80 Milligram
     Route: 041
     Dates: start: 20120620, end: 2012
  20. AMPHOJEL [Concomitant]
     Indication: HYPERPHOSPHATEMIA
     Dosage: 180 milliliter
     Route: 048
     Dates: end: 2012
  21. PANTOPRAZOLE [Concomitant]
     Indication: DRUG USE FOR UNKNOWN INDICATION
     Dosage: 40 Milligram
     Route: 041
     Dates: start: 20120626, end: 2012
  22. SELENIUM [Concomitant]
     Indication: DRUG USE FOR UNKNOWN INDICATION
     Dosage: 200 Microgram
     Route: 048
     Dates: start: 20120625, end: 2012

REACTIONS (3)
  - Pneumonia [Fatal]
  - Renal failure [Not Recovered/Not Resolved]
  - Tumour lysis syndrome [Not Recovered/Not Resolved]
